FAERS Safety Report 8500685-4 (Version None)
Quarter: 2012Q3

REPORT INFORMATION
  Report Type: 
  Country: None (occurrence: None)
  Receive Date: 20120710
  Receipt Date: 20120626
  Transmission Date: 20120928
  Serious: Yes (Other)
  Sender: FDA-Public Use
  Company Number: US-ROCHE-1084771

PATIENT
  Age: 9 Year
  Sex: Male

DRUGS (3)
  1. VINCRISTINE [Concomitant]
     Indication: ACUTE LYMPHOCYTIC LEUKAEMIA
  2. ACTIVASE [Suspect]
     Indication: SUPERIOR SAGITTAL SINUS THROMBOSIS
     Route: 042
  3. PEGASPARGASE [Suspect]
     Indication: ACUTE LYMPHOCYTIC LEUKAEMIA

REACTIONS (5)
  - DISTURBANCE IN ATTENTION [None]
  - INFARCTION [None]
  - HAEMORRHAGE [None]
  - INTRACRANIAL VENOUS SINUS THROMBOSIS [None]
  - MOTOR DYSFUNCTION [None]
